FAERS Safety Report 14171552 (Version 2)
Quarter: 2018Q2

REPORT INFORMATION
  Report Type: Spontaneous
  Country: US (occurrence: US)
  Receive Date: 20171108
  Receipt Date: 20180515
  Transmission Date: 20180711
  Serious: No
  Sender: FDA-Public Use
  Company Number: US-SA-2017SA114239

PATIENT
  Age: 66 Year
  Sex: Female

DRUGS (2)
  1. SOLOSTAR [Suspect]
     Active Substance: DEVICE
     Indication: DIABETES MELLITUS
  2. TOUJEO [Suspect]
     Active Substance: INSULIN GLARGINE
     Indication: DIABETES MELLITUS
     Dosage: DOSE:50 UNIT(S)
     Route: 051

REACTIONS (4)
  - Product use issue [Unknown]
  - Drug administered in wrong device [Unknown]
  - Device issue [Unknown]
  - Anxiety [Unknown]

NARRATIVE: CASE EVENT DATE: 2017
